FAERS Safety Report 22276919 (Version 1)
Quarter: 2023Q2

REPORT INFORMATION
  Report Type: Spontaneous
  Country: TR (occurrence: TR)
  Receive Date: 20230503
  Receipt Date: 20230503
  Transmission Date: 20230722
  Serious: Yes (Other)
  Sender: FDA-Public Use
  Company Number: None

PATIENT
  Age: 65 Year
  Sex: Male

DRUGS (5)
  1. METHYLPREDNISOLONE [Suspect]
     Active Substance: METHYLPREDNISOLONE
     Indication: Diffuse large B-cell lymphoma stage II
     Dosage: 80 MG FOR FIVE DAYS, THREE WEEKLY. (R-CHOP REGIMEN)
  2. CYCLOPHOSPHAMIDE [Suspect]
     Active Substance: CYCLOPHOSPHAMIDE
     Indication: Diffuse large B-cell lymphoma stage II
     Dosage: 750 MG/M2 EVERY 6 CYCLE (R-CHOP REGIMEN) (ON DAY 1)
  3. DOXORUBICIN [Suspect]
     Active Substance: DOXORUBICIN
     Indication: Diffuse large B-cell lymphoma stage II
     Dosage: 50 MG/M2 EVERY 6 CYCLE (R-CHOP REGIMEN) (ON DAY 1)
  4. RITUXIMAB [Suspect]
     Active Substance: RITUXIMAB
     Indication: Diffuse large B-cell lymphoma stage II
     Dosage: 375 MG/M2 EVERY 6 CYCLE (R-CHOP REGIMEN)
  5. VINCRISTINE [Suspect]
     Active Substance: VINCRISTINE
     Indication: Diffuse large B-cell lymphoma stage II
     Dosage: 2 MG  EVERY 6 CYCLE (R-CHOP REGIMEN)

REACTIONS (2)
  - Kaposi^s sarcoma [Recovering/Resolving]
  - Nausea [Unknown]
